FAERS Safety Report 4793825-4 (Version None)
Quarter: 2005Q4

REPORT INFORMATION
  Report Type: 
  Country: None (occurrence: None)
  Receive Date: 20051006
  Receipt Date: 20051006
  Transmission Date: 20060501
  Serious: No
  Sender: FDA-Public Use
  Company Number: None

PATIENT
  Sex: Male
  Weight: 118 kg

DRUGS (21)
  1. LAMICTAL [Suspect]
     Indication: BIPOLAR I DISORDER
     Dosage: 50 MG HS PO
     Route: 048
     Dates: start: 20050824, end: 20050928
  2. ACYCLOVIR [Concomitant]
  3. GENGRAF [Concomitant]
  4. CABAPENTIN [Concomitant]
  5. LOPID [Concomitant]
  6. ATARAX [Concomitant]
  7. SYNTHROID [Concomitant]
  8. LISINOPRIL [Concomitant]
  9. REGLAN [Concomitant]
  10. CELLCEPT [Concomitant]
  11. LAMOTRIGINE [Concomitant]
  12. PREDNISONE [Concomitant]
  13. ZOLOFT [Concomitant]
  14. RESTORIL [Concomitant]
  15. MYLANTA [Concomitant]
  16. ALKA-SELTZER [Concomitant]
  17. KEFLEX [Concomitant]
  18. NEXIUM [Concomitant]
  19. DOCUSATE [Concomitant]
  20. METHADONE HCL [Concomitant]
  21. M.V.I. [Concomitant]

REACTIONS (2)
  - DYSPNOEA [None]
  - TREMOR [None]
